FAERS Safety Report 9407840 (Version 1)
Quarter: 2013Q3

REPORT INFORMATION
  Report Type: Report from Study
  Country: US (occurrence: US)
  Receive Date: 20130718
  Receipt Date: 20130718
  Transmission Date: 20140515
  Serious: Yes (Hospitalization)
  Sender: FDA-Public Use
  Company Number: US-US-EMD SERONO, INC.-7223782

PATIENT
  Age: 52 Year
  Sex: Male

DRUGS (2)
  1. REBIF [Suspect]
     Indication: PRODUCT USED FOR UNKNOWN INDICATION
     Route: 058
     Dates: start: 20120409
  2. DEPAKOTE [Concomitant]
     Indication: CONVULSION

REACTIONS (2)
  - Drug level below therapeutic [Recovered/Resolved]
  - Convulsion [Recovered/Resolved]
